FAERS Safety Report 4739866-4 (Version None)
Quarter: 2005Q3

REPORT INFORMATION
  Report Type: 
  Country: None (occurrence: None)
  Receive Date: 20050810
  Receipt Date: 20050524
  Transmission Date: 20060218
  Serious: No
  Sender: FDA-Public Use
  Company Number: US-GLAXOSMITHKLINE-A0559903A

PATIENT
  Age: 73 Year
  Sex: Female

DRUGS (5)
  1. PAXIL [Suspect]
     Indication: DEPRESSION
     Dosage: 30MG PER DAY
     Route: 048
  2. TRICOR [Concomitant]
  3. WELLBUTRIN [Concomitant]
  4. CYTOMEL [Concomitant]
  5. EYE DROPS [Concomitant]

REACTIONS (1)
  - AMNESIA [None]
